FAERS Safety Report 5120659-3 (Version None)
Quarter: 2006Q4

REPORT INFORMATION
  Report Type: 
  Country: None (occurrence: None)
  Receive Date: 20061003
  Receipt Date: 20061003
  Transmission Date: 20070319
  Serious: Yes (Other)
  Sender: FDA-Public Use
  Company Number: None

PATIENT
  Age: 84 Year
  Weight: 92.9874 kg

DRUGS (2)
  1. CEFEPIME [Suspect]
     Indication: MENINGITIS
     Dosage: 2GM 8 HRS IV
     Route: 042
     Dates: start: 20060929, end: 20061002
  2. VANCOMYCIN [Concomitant]

REACTIONS (1)
  - RASH [None]
